FAERS Safety Report 15957780 (Version 3)
Quarter: 2019Q2

REPORT INFORMATION
  Report Type: Spontaneous
  Country: US (occurrence: US)
  Receive Date: 20190213
  Receipt Date: 20190524
  Transmission Date: 20190711
  Serious: Yes (Other)
  Sender: FDA-Public Use
  Company Number: US-ASTRAZENECA-2018SF13876

PATIENT
  Sex: Female

DRUGS (35)
  1. PRILOSEC OTC [Suspect]
     Active Substance: OMEPRAZOLE MAGNESIUM
     Route: 048
  2. COZAAR [Concomitant]
     Active Substance: LOSARTAN POTASSIUM
  3. TRAMADOL. [Concomitant]
     Active Substance: TRAMADOL
  4. PROVENTIL [Concomitant]
     Active Substance: ALBUTEROL
  5. BUDESONIDE. [Concomitant]
     Active Substance: BUDESONIDE
  6. PREVACID [Suspect]
     Active Substance: LANSOPRAZOLE
     Route: 065
  7. PROAIR HFA [Concomitant]
     Active Substance: ALBUTEROL SULFATE
  8. ADVAIR HFA [Concomitant]
     Active Substance: FLUTICASONE PROPIONATE\SALMETEROL XINAFOATE
  9. LASIX [Concomitant]
     Active Substance: FUROSEMIDE
  10. MOTRIN [Concomitant]
     Active Substance: IBUPROFEN
  11. SPIRONOLACTONE. [Concomitant]
     Active Substance: SPIRONOLACTONE
  12. TYLENOL [Concomitant]
     Active Substance: ACETAMINOPHEN
  13. ONDANSETRON [Concomitant]
     Active Substance: ONDANSETRON
  14. HEPARIN [Concomitant]
     Active Substance: HEPARIN SODIUM
  15. NEXIUM [Suspect]
     Active Substance: ESOMEPRAZOLE MAGNESIUM
     Route: 048
  16. NEXIUM 24HR [Suspect]
     Active Substance: ESOMEPRAZOLE MAGNESIUM
     Route: 048
  17. LORAZEPAM. [Concomitant]
     Active Substance: LORAZEPAM
  18. PREVACID 24 HR [Suspect]
     Active Substance: LANSOPRAZOLE
     Route: 065
  19. XANAX [Concomitant]
     Active Substance: ALPRAZOLAM
  20. LORATADINE. [Concomitant]
     Active Substance: LORATADINE
  21. LEXAPRO [Concomitant]
     Active Substance: ESCITALOPRAM OXALATE
  22. ASPIRIN. [Concomitant]
     Active Substance: ASPIRIN
  23. PERCOCET [Concomitant]
     Active Substance: ACETAMINOPHEN\OXYCODONE HYDROCHLORIDE
  24. CLONIDINE. [Concomitant]
     Active Substance: CLONIDINE
  25. LOVENOX [Concomitant]
     Active Substance: ENOXAPARIN SODIUM
  26. PRILOSEC [Suspect]
     Active Substance: OMEPRAZOLE MAGNESIUM
     Route: 048
  27. NORCO [Concomitant]
     Active Substance: ACETAMINOPHEN\HYDROCODONE BITARTRATE
  28. HYDROCHLOROTHIAZIDE. [Concomitant]
     Active Substance: HYDROCHLOROTHIAZIDE
  29. TRAZODONE [Concomitant]
     Active Substance: TRAZODONE HYDROCHLORIDE
  30. HYDROXYZINE [Concomitant]
     Active Substance: HYDROXYZINE HYDROCHLORIDE
  31. VENTOLIN [Concomitant]
     Active Substance: ALBUTEROL SULFATE
  32. DEXTROSE. [Concomitant]
     Active Substance: DEXTROSE
  33. FUROSEMIDE. [Concomitant]
     Active Substance: FUROSEMIDE
  34. NALOXONE [Concomitant]
     Active Substance: NALOXONE
  35. POTASSIUM CHLORIDE. [Concomitant]
     Active Substance: POTASSIUM CHLORIDE

REACTIONS (3)
  - Acute kidney injury [Unknown]
  - Renal failure [Unknown]
  - Chronic kidney disease [Unknown]
